FAERS Safety Report 20814096 (Version 4)
Quarter: 2024Q4

REPORT INFORMATION
  Report Type: Spontaneous
  Country: IN (occurrence: IN)
  Receive Date: 20220511
  Receipt Date: 20241125
  Transmission Date: 20250115
  Serious: Yes (Death, Other)
  Sender: PFIZER
  Company Number: IN-PFIZER INC-202200644649

PATIENT
  Age: 56 Year
  Sex: Male

DRUGS (1)
  1. CRIZOTINIB [Suspect]
     Active Substance: CRIZOTINIB
     Indication: Lung neoplasm malignant
     Dosage: 250 MG, 2X/DAY
     Route: 048
     Dates: start: 20210218

REACTIONS (11)
  - Death [Fatal]
  - Mitral valve incompetence [Unknown]
  - Tricuspid valve incompetence [Unknown]
  - Pulmonary valve incompetence [Unknown]
  - Ventricular hypokinesia [Unknown]
  - Oedema peripheral [Unknown]
  - Peripheral swelling [Unknown]
  - Left atrial dilatation [Unknown]
  - Left ventricular dilatation [Unknown]
  - Left ventricular dysfunction [Unknown]
  - White blood cells urine positive [Unknown]

NARRATIVE: CASE EVENT DATE: 20220414
